FAERS Safety Report 16269221 (Version 1)
Quarter: 2019Q2

REPORT INFORMATION
  Report Type: Spontaneous
  Country: US (occurrence: US)
  Receive Date: 20190502
  Receipt Date: 20190502
  Transmission Date: 20190711
  Serious: No
  Sender: FDA-Public Use
  Company Number: None

PATIENT
  Age: 51 Year
  Sex: Female
  Weight: 81 kg

DRUGS (8)
  1. AIMOVIG [Suspect]
     Active Substance: ERENUMAB-AOOE
     Indication: MIGRAINE
     Dosage: ?          OTHER FREQUENCY:MONTHLY;?
     Route: 058
  2. AMBIEN [Concomitant]
     Active Substance: ZOLPIDEM TARTRATE
  3. NEXIUM [Concomitant]
     Active Substance: ESOMEPRAZOLE MAGNESIUM
  4. TIZANADINE [Concomitant]
     Active Substance: TIZANIDINE
  5. PEPCID [Concomitant]
     Active Substance: FAMOTIDINE
  6. AIMOVIG [Concomitant]
     Active Substance: ERENUMAB-AOOE
  7. LOVASTATIN. [Concomitant]
     Active Substance: LOVASTATIN
  8. MOBIC [Concomitant]
     Active Substance: MELOXICAM

REACTIONS (1)
  - Alopecia [None]

NARRATIVE: CASE EVENT DATE: 20190201
